FAERS Safety Report 9848162 (Version 1)
Quarter: 2013Q4

REPORT INFORMATION
  Report Type: Spontaneous
  Country: US (occurrence: None)
  Receive Date: 20131223
  Receipt Date: 20131223
  Transmission Date: 20140711
  Serious: Yes (Other)
  Sender: FDA-Public Use
  Company Number: 1000050873

PATIENT
  Age: 69 Year
  Sex: Female

DRUGS (8)
  1. LINZESS [Suspect]
     Indication: IRRITABLE BOWEL SYNDROME
     Dosage: 145 MCG (145 MCG, 1 IN 1 D), ORAL
     Route: 048
     Dates: start: 201310, end: 201310
  2. LINZESS (LINACLOTIDE) (CAPSULES) [Suspect]
     Indication: IRRITABLE BOWEL SYNDROME
     Dosage: 290 MCG (290 MCG, 1 IN 1 D), ORAL
     Route: 048
     Dates: start: 201310, end: 20131104
  3. MELOXICAM (MELOXICAM) (MELOXICAM) [Concomitant]
  4. ATENOLOL (ATENOLOL) (ATENOLOL) [Concomitant]
  5. PRAASTATIN (PRAVASTATIN) (PRAVASTATIN) [Concomitant]
  6. LOSARTAN (LOSARTAN) (LOSARTAN) [Concomitant]
  7. AMLODIPINE (AMLODIPINE) (AMLODIPINE) [Concomitant]
  8. LATANOPROST (LATANOPROST) (LATANOPROST) [Concomitant]

REACTIONS (1)
  - Diarrhoea [None]
